FAERS Safety Report 20617396 (Version 1)
Quarter: 2022Q1

REPORT INFORMATION
  Report Type: Spontaneous
  Country: FR (occurrence: FR)
  Receive Date: 20220321
  Receipt Date: 20220321
  Transmission Date: 20220423
  Serious: Yes (Hospitalization)
  Sender: FDA-Public Use
  Company Number: FR-NOVARTISPH-NVSC2022FR063378

PATIENT
  Age: 78 Year
  Sex: Male

DRUGS (1)
  1. EVEROLIMUS [Suspect]
     Active Substance: EVEROLIMUS
     Indication: Liver transplant
     Dosage: 0.75 MG, BID (1 TABLET OF 0.75MG)
     Route: 065
     Dates: start: 201401

REACTIONS (5)
  - Haematoma [Unknown]
  - Skin plaque [Unknown]
  - Coagulation factor VIII level decreased [Unknown]
  - Pruritus [Unknown]
  - Erythema [Unknown]

NARRATIVE: CASE EVENT DATE: 20180101
